FAERS Safety Report 25769649 (Version 1)
Quarter: 2025Q3

REPORT INFORMATION
  Report Type: Spontaneous
  Country: US (occurrence: US)
  Receive Date: 20250906
  Receipt Date: 20250906
  Transmission Date: 20251020
  Serious: No
  Sender: ELI LILLY AND COMPANY
  Company Number: US-ELI_LILLY_AND_COMPANY-US202509002773

PATIENT
  Age: 64 Year
  Sex: Female

DRUGS (1)
  1. HUMULIN N [Suspect]
     Active Substance: INSULIN HUMAN
     Indication: Type 2 diabetes mellitus
     Route: 058
     Dates: start: 20250821

REACTIONS (5)
  - Tremor [Unknown]
  - Headache [Unknown]
  - Chills [Unknown]
  - Drug ineffective [Unknown]
  - Blood glucose increased [Unknown]
